FAERS Safety Report 6600665-X (Version None)
Quarter: 2010Q1

REPORT INFORMATION
  Report Type: 
  Country: None (occurrence: None)
  Receive Date: 20100223
  Receipt Date: 20100223
  Transmission Date: 20100710
  Serious: Yes (Life-Threatening)
  Sender: FDA-Public Use
  Company Number: None

PATIENT
  Sex: Female
  Weight: 85.04 kg

DRUGS (9)
  1. REOPRO [Suspect]
     Indication: CATHETERISATION CARDIAC
     Dosage: 30MG - 3 VIALS-
     Dates: start: 20100218, end: 20100218
  2. VICODIN [Concomitant]
  3. ENALAPRIL MALEATE [Concomitant]
  4. HUMALOG [Concomitant]
  5. METFORMIN HCL [Concomitant]
  6. NITROGLYCERIN [Concomitant]
  7. PANTOPRAZOLE [Concomitant]
  8. PRAVASTATIN [Concomitant]
  9. SODIUM CHLORIDE [Concomitant]

REACTIONS (3)
  - CATHETER SITE HAEMORRHAGE [None]
  - INJECTION SITE HAEMORRHAGE [None]
  - THROMBOCYTOPENIA [None]
